FAERS Safety Report 7117976-4 (Version None)
Quarter: 2010Q4

REPORT INFORMATION
  Report Type: 
  Country: None (occurrence: None)
  Receive Date: 20101118
  Receipt Date: 20101118
  Transmission Date: 20110411
  Serious: Yes (Life-Threatening, Hospitalization, Disabling)
  Sender: FDA-Public Use
  Company Number: None

PATIENT
  Age: 11 Year
  Sex: Male
  Weight: 114.4 kg

DRUGS (1)
  1. DAYTRANA [Suspect]
     Indication: ATTENTION DEFICIT/HYPERACTIVITY DISORDER
     Dosage: 30 MG OVER 9 HOURS TRANSDERMAL
     Route: 062
     Dates: start: 20090202, end: 20101028

REACTIONS (3)
  - EYE ROLLING [None]
  - OVERDOSE [None]
  - UNRESPONSIVE TO STIMULI [None]
